FAERS Safety Report 19246418 (Version 1)
Quarter: 2021Q2

REPORT INFORMATION
  Report Type: Spontaneous
  Country: US (occurrence: US)
  Receive Date: 20210512
  Receipt Date: 20210512
  Transmission Date: 20210717
  Serious: No
  Sender: FDA-Public Use
  Company Number: None

PATIENT
  Sex: Male

DRUGS (1)
  1. TREMFYA [Suspect]
     Active Substance: GUSELKUMAB
     Indication: PSORIASIS
     Dosage: ?          OTHER FREQUENCY:EVERY 8 WEEKS ;?
     Route: 058
     Dates: start: 20180104

REACTIONS (4)
  - Haemorrhage [None]
  - Drug ineffective [None]
  - Psoriasis [None]
  - Pruritus [None]
